FAERS Safety Report 18179409 (Version 7)
Quarter: 2021Q3

REPORT INFORMATION
  Report Type: Spontaneous
  Country: CA (occurrence: CA)
  Receive Date: 20200821
  Receipt Date: 20210811
  Transmission Date: 20211014
  Serious: Yes (Other)
  Sender: FDA-Public Use
  Company Number: CA-ROCHE-2583896

PATIENT
  Age: 52 Year
  Sex: Male

DRUGS (68)
  1. LOPINAVIR [Suspect]
     Active Substance: LOPINAVIR
     Indication: HIV INFECTION
     Dosage: THERAPY DURATION: 3141.0 DAYS
     Route: 065
  2. NELFINAVIR [Suspect]
     Active Substance: NELFINAVIR
     Indication: HIV INFECTION
     Route: 065
  3. SUSTIVA [Suspect]
     Active Substance: EFAVIRENZ
     Indication: HIV INFECTION
     Dosage: THERAPY DURATION: 1189.0 DAYS
     Route: 048
  4. ZERIT [Suspect]
     Active Substance: STAVUDINE
     Route: 016
  5. ABACAVIR SUCCINATE [Suspect]
     Active Substance: ABACAVIR SUCCINATE
     Dosage: THERAPY DURATION: 2920.0 DAYS
     Route: 048
  6. TENOFOVIR [Suspect]
     Active Substance: TENOFOVIR
     Route: 065
  7. DELAVIRDINE MESYLATE [Suspect]
     Active Substance: DELAVIRDINE MESYLATE
     Indication: HIV INFECTION
     Route: 065
  8. DELAVIRDINE MESYLATE [Suspect]
     Active Substance: DELAVIRDINE MESYLATE
     Route: 048
  9. RALTEGRAVIR. [Suspect]
     Active Substance: RALTEGRAVIR
     Indication: HIV INFECTION
     Route: 048
  10. TENOFOVIR DISOPROXIL FUMARATE. [Suspect]
     Active Substance: TENOFOVIR DISOPROXIL FUMARATE
     Route: 048
  11. ABACAVIR SUCCINATE [Suspect]
     Active Substance: ABACAVIR SUCCINATE
     Route: 048
  12. NELFINAVIR MESILATE [Suspect]
     Active Substance: NELFINAVIR MESYLATE
     Route: 065
  13. ZIAGEN [Suspect]
     Active Substance: ABACAVIR SULFATE
     Indication: HIV INFECTION
     Route: 048
  14. VIRACEPT [Suspect]
     Active Substance: NELFINAVIR MESYLATE
     Indication: HIV INFECTION
     Dosage: THERAPY DURATION: 274.0 DAYS
     Route: 065
  15. TENOFOVIR [Suspect]
     Active Substance: TENOFOVIR
     Indication: HIV INFECTION
     Dosage: THERAPY DURATION: 2470.0 DAYS
     Route: 048
  16. ZIDOVUDINE. [Suspect]
     Active Substance: ZIDOVUDINE
     Route: 065
  17. ISENTRESS [Suspect]
     Active Substance: RALTEGRAVIR POTASSIUM
     Indication: HIV INFECTION
     Route: 065
  18. KALETRA [Suspect]
     Active Substance: LOPINAVIR\RITONAVIR
     Route: 048
  19. VIDEX EC [Suspect]
     Active Substance: DIDANOSINE
     Indication: HIV INFECTION
     Route: 048
  20. ZERIT [Suspect]
     Active Substance: STAVUDINE
     Indication: HIV INFECTION
     Route: 065
  21. ABACAVIR SUCCINATE [Suspect]
     Active Substance: ABACAVIR SUCCINATE
     Indication: HIV INFECTION
     Route: 065
  22. PREZISTA [Suspect]
     Active Substance: DARUNAVIR ETHANOLATE
     Indication: HIV INFECTION
     Route: 048
  23. ZIAGEN [Suspect]
     Active Substance: ABACAVIR SULFATE
     Route: 048
  24. SAQUINAVIR [Suspect]
     Active Substance: SAQUINAVIR
     Indication: HIV INFECTION
     Route: 065
  25. DARUNAVIR [Suspect]
     Active Substance: DARUNAVIR
     Indication: HIV INFECTION
     Route: 065
  26. NEVIRAPINE. [Suspect]
     Active Substance: NEVIRAPINE
     Indication: HIV INFECTION
     Route: 065
  27. RITONAVIR. [Suspect]
     Active Substance: RITONAVIR
     Route: 016
  28. EFAVIRENZ. [Suspect]
     Active Substance: EFAVIRENZ
     Indication: HIV INFECTION
     Route: 048
  29. KALETRA [Suspect]
     Active Substance: LOPINAVIR\RITONAVIR
     Route: 016
  30. ETRAVIRINE [Suspect]
     Active Substance: ETRAVIRINE
     Indication: ANTIRETROVIRAL THERAPY
     Route: 065
  31. TENOFOVIR DISOPROXIL FUMARATE. [Suspect]
     Active Substance: TENOFOVIR DISOPROXIL FUMARATE
     Indication: HIV INFECTION
     Dosage: THERAPY DURATION: 2470.0 DAYS
     Route: 048
  32. RALTEGRAVIR POTASSIUM [Suspect]
     Active Substance: RALTEGRAVIR POTASSIUM
     Indication: PRODUCT USED FOR UNKNOWN INDICATION
  33. VIRAMUNE [Suspect]
     Active Substance: NEVIRAPINE
     Indication: HIV INFECTION
     Route: 065
  34. VIRAMUNE [Suspect]
     Active Substance: NEVIRAPINE
     Route: 048
  35. DARUNAVIR [Suspect]
     Active Substance: DARUNAVIR
     Indication: ANTIRETROVIRAL THERAPY
     Dosage: THERAPY DURATION: 91.0 DAYS
     Route: 048
  36. ZIDOVUDINE. [Suspect]
     Active Substance: ZIDOVUDINE
     Indication: HIV INFECTION
     Route: 048
  37. INTELENCE [Suspect]
     Active Substance: ETRAVIRINE
     Indication: HIV INFECTION
     Route: 048
  38. ETRAVIRINE [Suspect]
     Active Substance: ETRAVIRINE
     Indication: HIV INFECTION
     Dosage: THERAPY DURATION: 91.0 DAYS
     Route: 048
  39. RALTEGRAVIR. [Suspect]
     Active Substance: RALTEGRAVIR
     Route: 065
  40. NELFINAVIR MESILATE [Suspect]
     Active Substance: NELFINAVIR MESYLATE
     Indication: HIV INFECTION
     Route: 048
  41. SAQUINAVIR [Suspect]
     Active Substance: SAQUINAVIR
     Dosage: THERAPY DURATION: 457.0 DAYS
     Route: 048
  42. ABACAVIR. [Suspect]
     Active Substance: ABACAVIR
     Indication: HIV INFECTION
     Route: 065
  43. DIDANOSINE. [Suspect]
     Active Substance: DIDANOSINE
     Indication: HIV INFECTION
     Dosage: THERAPY DURATION: 2920.0 DAYS
     Route: 065
  44. EFAVIRENZ. [Suspect]
     Active Substance: EFAVIRENZ
     Route: 065
  45. ISENTRESS [Suspect]
     Active Substance: RALTEGRAVIR POTASSIUM
     Route: 048
  46. FUZEON [Suspect]
     Active Substance: ENFUVIRTIDE
     Indication: HIV INFECTION
     Route: 058
  47. VIREAD [Suspect]
     Active Substance: TENOFOVIR DISOPROXIL FUMARATE
     Indication: HIV INFECTION
     Route: 048
  48. ABACAVIR SULFATE. [Suspect]
     Active Substance: ABACAVIR SULFATE
     Indication: HIV INFECTION
     Route: 065
  49. INDINAVIR SULFATE [Suspect]
     Active Substance: INDINAVIR SULFATE
     Indication: HIV INFECTION
     Dosage: THERAPY DURATION: 793.0 DAYS
     Route: 048
  50. RALTEGRAVIR POTASSIUM [Suspect]
     Active Substance: RALTEGRAVIR POTASSIUM
     Indication: HIV INFECTION
     Route: 048
  51. ZIAGEN [Suspect]
     Active Substance: ABACAVIR SULFATE
     Route: 065
  52. NEVIRAPINE. [Suspect]
     Active Substance: NEVIRAPINE
     Dosage: THERAPY DURATION: 2920.0 DAYS
     Route: 048
  53. KALETRA [Suspect]
     Active Substance: LOPINAVIR\RITONAVIR
     Indication: HIV INFECTION
     Route: 065
  54. NORVIR [Suspect]
     Active Substance: RITONAVIR
     Indication: ANTIRETROVIRAL THERAPY
  55. TENOFOVIR DISOPROXIL FUMARATE. [Suspect]
     Active Substance: TENOFOVIR DISOPROXIL FUMARATE
     Route: 065
  56. ABACAVIR SUCCINATE [Suspect]
     Active Substance: ABACAVIR SUCCINATE
     Route: 065
  57. STAVUDINE. [Suspect]
     Active Substance: STAVUDINE
     Indication: HIV INFECTION
     Dosage: THERAPY DURATION: 2196.0 DAYS
     Route: 048
  58. LAMIVUDINE. [Suspect]
     Active Substance: LAMIVUDINE
     Indication: HIV INFECTION
     Dosage: THERAPY DURATION: 9668.0 DAYS
     Route: 065
  59. NELFINAVIR [Suspect]
     Active Substance: NELFINAVIR
     Route: 048
  60. RITONAVIR. [Suspect]
     Active Substance: RITONAVIR
     Indication: HIV INFECTION
     Route: 065
  61. CRIXIVAN [Suspect]
     Active Substance: INDINAVIR SULFATE
     Indication: HIV INFECTION
     Route: 048
  62. NORVIR [Suspect]
     Active Substance: RITONAVIR
     Indication: HIV INFECTION
     Dosage: THERAPY DURATION: 427.0 DAYS
     Route: 065
  63. RESCRIPTOR [Suspect]
     Active Substance: DELAVIRDINE MESYLATE
     Indication: HIV INFECTION
     Route: 048
  64. VIDEX EC [Suspect]
     Active Substance: DIDANOSINE
     Route: 048
  65. DELAVIRDINE MESYLATE [Suspect]
     Active Substance: DELAVIRDINE MESYLATE
     Route: 048
  66. ABACAVIR SUCCINATE [Suspect]
     Active Substance: ABACAVIR SUCCINATE
     Indication: ANTIRETROVIRAL THERAPY
     Route: 048
  67. INDINAVIR [Suspect]
     Active Substance: INDINAVIR
     Indication: HIV INFECTION
     Route: 065
  68. ZIAGEN [Suspect]
     Active Substance: ABACAVIR SULFATE
     Indication: PRODUCT USED FOR UNKNOWN INDICATION
     Route: 065

REACTIONS (9)
  - Progressive external ophthalmoplegia [Unknown]
  - Blood lactic acid increased [Unknown]
  - Mitochondrial toxicity [Unknown]
  - Dysphagia [Unknown]
  - Diplopia [Unknown]
  - Eyelid ptosis [Unknown]
  - Lipodystrophy acquired [Unknown]
  - Extraocular muscle paresis [Unknown]
  - Ophthalmoplegia [Unknown]
